FAERS Safety Report 8145352-4 (Version None)
Quarter: 2012Q1

REPORT INFORMATION
  Report Type: 
  Country: None (occurrence: None)
  Receive Date: 20120103
  Receipt Date: 20111107
  Transmission Date: 20120608
  Serious: No
  Sender: FDA-Public Use
  Company Number: AE-2011-003175

PATIENT
  Age: 44 Year
  Sex: Female
  Weight: 117.9352 kg

DRUGS (3)
  1. INCIVEK [Suspect]
     Dosage: 6 DOSAGE FORMS (2 DOSAGE FORMS, 3 IN 1 D), ORAL
     Route: 048
     Dates: start: 20111020
  2. RIBAVIRIN [Concomitant]
  3. PEGASYS [Concomitant]

REACTIONS (1)
  - PRURITUS [None]
